FAERS Safety Report 25469328 (Version 2)
Quarter: 2025Q3

REPORT INFORMATION
  Report Type: Spontaneous
  Country: EU (occurrence: EU)
  Receive Date: 20250623
  Receipt Date: 20250707
  Transmission Date: 20251020
  Serious: Yes (Other)
  Sender: JOHNSON AND JOHNSON
  Company Number: EU-JNJFOC-20250628054

PATIENT
  Age: 69 Year
  Sex: Male

DRUGS (4)
  1. XARELTO [Suspect]
     Active Substance: RIVAROXABAN
     Indication: Atrial fibrillation
     Route: 048
     Dates: start: 202105, end: 202205
  2. XARELTO [Suspect]
     Active Substance: RIVAROXABAN
     Indication: Product used for unknown indication
     Route: 048
     Dates: start: 202205
  3. UNSPECIFIED INGREDIENT [Concomitant]
     Active Substance: UNSPECIFIED INGREDIENT
     Indication: Product used for unknown indication
  4. UNSPECIFIED INGREDIENT [Concomitant]
     Active Substance: UNSPECIFIED INGREDIENT
     Indication: Product used for unknown indication

REACTIONS (7)
  - Colon cancer [Recovered/Resolved]
  - Gingival bleeding [Recovered/Resolved]
  - Blood urine present [Not Recovered/Not Resolved]
  - Haematuria [Not Recovered/Not Resolved]
  - Haematospermia [Recovering/Resolving]
  - Benign prostatic hyperplasia [Unknown]
  - Stress [Unknown]

NARRATIVE: CASE EVENT DATE: 20210101
